FAERS Safety Report 19212785 (Version 2)
Quarter: 2021Q3

REPORT INFORMATION
  Report Type: Other
  Country: US (occurrence: US)
  Receive Date: 20210504
  Receipt Date: 20210917
  Transmission Date: 20211014
  Serious: Yes (Hospitalization)
  Sender: FDA-Public Use
  Company Number: US-ROCHE-2774423

PATIENT
  Sex: Female

DRUGS (27)
  1. ACTEMRA [Suspect]
     Active Substance: TOCILIZUMAB
  2. BACTRIM DS [Concomitant]
     Active Substance: SULFAMETHOXAZOLE\TRIMETHOPRIM
     Dosage: TAKE 1 TABLET (160 MG TRIMETHOPRIM) BY MOUTH EVERY MONDAY, WEDNESDAY, FRIDAY
     Route: 048
     Dates: start: 20201221
  3. VITAMIN B COMPLEX [Concomitant]
     Active Substance: CYANOCOBALAMIN\DEXPANTHENOL\NIACINAMIDE\PYRIDOXINE HYDROCHLORIDE\RIBOFLAVIN 5^-PHOSPHATE SODIUM\THIAMINE HYDROCHLORIDE\VITAMIN B COMPLEX
     Indication: HYPOVITAMINOSIS
     Dosage: TAKE 1 TABLET BY MOUTH DAILY INDICATIONS: VITAMIN DEFICIENCY
     Route: 048
     Dates: start: 20201201
  4. ACTEMRA [Suspect]
     Active Substance: TOCILIZUMAB
     Indication: DEMYELINATION
     Dosage: INJECT 162MG SUBCUTANEOUSLY EVERY WEEK,?162 MG/0.9 ML
     Route: 058
  5. ACTEMRA [Suspect]
     Active Substance: TOCILIZUMAB
  6. VITAMIN C [Concomitant]
     Active Substance: ASCORBIC ACID
     Route: 048
  7. RED YEAST RICE [Concomitant]
     Active Substance: DIETARY SUPPLEMENT
     Route: 048
     Dates: start: 20201201
  8. NIZORAL [Concomitant]
     Active Substance: KETOCONAZOLE
     Dosage: APPLY TOPICALLY TO AFFECTED AREA EVERY OTHER DAY
     Route: 061
  9. OYSTER SHELL CALCIUM [Concomitant]
     Active Substance: CALCIUM
     Dosage: TAKE 1 TABLET (500) BY MOUTH 2 TIMES A DAY
     Route: 048
     Dates: start: 20201201
  10. PROTONIX (ENTERIC COATED) [Concomitant]
     Dosage: TAKE 40 MG TABLET ORALLY 2 TIMES DAY
     Route: 048
  11. ABILIFY [Concomitant]
     Active Substance: ARIPIPRAZOLE
     Dosage: TAKE 10 MG BY MOUTH DAILY
     Route: 048
     Dates: start: 20180126
  12. CRESTOR [Concomitant]
     Active Substance: ROSUVASTATIN CALCIUM
     Dosage: TAKE 20 MG BY MOUTH DAILY
     Route: 048
  13. LIORESAL [Concomitant]
     Active Substance: BACLOFEN
     Dosage: TAKE 1 TABLET BY MOUTH 3 TIMES DAILY
     Route: 048
     Dates: start: 20210815
  14. ACTEMRA [Suspect]
     Active Substance: TOCILIZUMAB
  15. ACTEMRA [Suspect]
     Active Substance: TOCILIZUMAB
  16. SYNALAR [Concomitant]
     Active Substance: FLUOCINOLONE ACETONIDE
     Dosage: APPLY TOPICALLY TO AFFECTED AREA 2 TIMES DAILY AS NEEDED
     Route: 061
  17. VITAMIN D3 [Concomitant]
     Active Substance: CHOLECALCIFEROL
     Dosage: TAKE 1 CAPSULE (5,000 UNITS) BY MOUTH DAILY,?30CAPSULES
     Route: 048
     Dates: start: 20201201
  18. COENZYME Q10 [Concomitant]
     Active Substance: DIETARY SUPPLEMENT\UBIDECARENONE
     Dosage: TAKE 1 CAPSULE (30 MG) BY MOUTH DAILY
     Route: 048
     Dates: start: 20201201
  19. NEURONTIN [Concomitant]
     Active Substance: GABAPENTIN
     Dosage: TAKE 1 CAPSULE BY MOUTH 3 TIMES DAILY
     Route: 048
     Dates: start: 20200815
  20. PANTOPRAZOLE [Concomitant]
     Active Substance: PANTOPRAZOLE
     Dosage: TAKE 40MG BY MOUTH 2 TIMES A DAY
  21. ACTEMRA [Suspect]
     Active Substance: TOCILIZUMAB
     Indication: DEMYELINATION
  22. KLONOPIN [Suspect]
     Active Substance: CLONAZEPAM
     Indication: PRODUCT USED FOR UNKNOWN INDICATION
     Route: 065
     Dates: start: 20180407
  23. DECADRON [Concomitant]
     Active Substance: DEXAMETHASONE
     Dosage: TAKE 1 MG TABLET BY MOUTH DAILY
     Route: 048
     Dates: start: 20201221
  24. FERROUS SULFATE. [Concomitant]
     Active Substance: FERROUS SULFATE
     Dosage: TAKE 1 TABLET (325 MG) BY MOUTH DAILY WITH BREAKFAST
     Route: 048
     Dates: start: 20200816
  25. FOCALIN XR [Concomitant]
     Active Substance: DEXMETHYLPHENIDATE HYDROCHLORIDE
     Dosage: TAKE 70 MG BY MOUTH DAILY
     Route: 048
     Dates: start: 20180516
  26. LAMICTAL [Concomitant]
     Active Substance: LAMOTRIGINE
     Dosage: TAKE 100 MG TABLET 2 TIMES A DAY
     Route: 048
     Dates: start: 20180407
  27. ZOLOFT [Concomitant]
     Active Substance: SERTRALINE HYDROCHLORIDE
     Dosage: TAKE 100 MG TABLET BY MOUTH AT BEDTIME
     Route: 048
     Dates: start: 20180306

REACTIONS (7)
  - Myalgia [Unknown]
  - Fall [Unknown]
  - Musculoskeletal stiffness [Unknown]
  - Fatigue [Unknown]
  - Dizziness [Unknown]
  - Off label use [Unknown]
  - Nausea [Unknown]
